FAERS Safety Report 6292579-2 (Version None)
Quarter: 2009Q3

REPORT INFORMATION
  Report Type: 
  Country: None (occurrence: None)
  Receive Date: 20090731
  Receipt Date: 20090723
  Transmission Date: 20100115
  Serious: Yes (Other)
  Sender: FDA-Public Use
  Company Number: US-JNJCH-2009020099

PATIENT
  Age: 81 Year
  Sex: Female
  Weight: 95.3 kg

DRUGS (9)
  1. DESITIN DIAPER RASH [Suspect]
     Indication: RASH
     Dosage: TEXT:SMALL AMOUNT IN THE MORNING AND EVENING
     Route: 061
  2. SIMVASTATIN [Concomitant]
     Indication: BLOOD CHOLESTEROL
     Dosage: TEXT:UNSPECIFIED ONCE DAILY
     Route: 065
  3. PROVEST [Concomitant]
     Indication: FLATULENCE
     Dosage: TEXT:UNSPECIFIED ONCE DAILY
     Route: 065
  4. METFORMIN [Concomitant]
     Indication: DIABETES MELLITUS
     Dosage: TEXT:UNSPECIFIED, TWO DAILY
     Route: 065
  5. ASPIRIN [Concomitant]
     Indication: CARDIAC DISORDER
     Dosage: TEXT:UNSPECIFIED ONCE DAILY
     Route: 065
  6. XYZAL [Concomitant]
     Indication: HYPERSENSITIVITY
     Dosage: DAILY DOSE:5MG-TEXT:5 MG ONCE DAILY
     Route: 065
  7. AMLODIPINE [Concomitant]
     Indication: BLOOD CHOLESTEROL
     Dosage: TEXT:UNSPECIFIED ONCE DAILY
     Route: 065
  8. PHENYTOIN [Concomitant]
     Indication: CONVULSION
     Dosage: TEXT:UNSPECIFIED,  FOUR DAILY
     Route: 065
  9. ISOSORBIDE DINITRATE [Concomitant]
     Indication: CARDIAC DISORDER
     Dosage: TEXT:UNSPECIFIED ONCE DAILY
     Route: 065

REACTIONS (6)
  - EXCORIATION [None]
  - FURUNCLE [None]
  - OFF LABEL USE [None]
  - PURULENCE [None]
  - RASH [None]
  - VISION BLURRED [None]
